FAERS Safety Report 21990202 (Version 3)
Quarter: 2023Q1

REPORT INFORMATION
  Report Type: Spontaneous
  Country: US (occurrence: US)
  Receive Date: 20230214
  Receipt Date: 20230306
  Transmission Date: 20230418
  Serious: Yes (Disabling)
  Sender: FDA-Public Use
  Company Number: US-PFIZER INC-PV202300027120

PATIENT
  Age: 63 Year
  Sex: Female
  Weight: 63.039 kg

DRUGS (3)
  1. PAXLOVID [Suspect]
     Active Substance: NIRMATRELVIR\RITONAVIR
     Indication: COVID-19 treatment
     Dosage: PAXLOVID 150(X2) 100 MG PK EUA TABLETS DOSE PK
     Route: 048
     Dates: start: 20230130, end: 20230203
  2. GEMTESA [Concomitant]
     Active Substance: VIBEGRON
     Indication: Pollakiuria
     Dosage: UNK
     Route: 048
     Dates: start: 202210
  3. SILICON DIOXIDE [Concomitant]
     Active Substance: SILICON DIOXIDE
     Dosage: UNK
     Dates: start: 20230114

REACTIONS (2)
  - COVID-19 [Recovering/Resolving]
  - Disease recurrence [Recovering/Resolving]

NARRATIVE: CASE EVENT DATE: 20230206
